FAERS Safety Report 18554785 (Version 2)
Quarter: 2020Q4

REPORT INFORMATION
  Report Type: Spontaneous
  Country: GB (occurrence: GB)
  Receive Date: 20201127
  Receipt Date: 20201204
  Transmission Date: 20210114
  Serious: Yes (Other)
  Sender: FDA-Public Use
  Company Number: GB-IPSEN BIOPHARMACEUTICALS, INC.-2020-23463

PATIENT

DRUGS (1)
  1. SOMATULINE AUTOGEL [Suspect]
     Active Substance: LANREOTIDE ACETATE
     Indication: PRODUCT USED FOR UNKNOWN INDICATION
     Dosage: THREE WEEKLY ADMINISTRATION/POTENTIALLY INJECTING EVERY TWO WEEKS
     Route: 065

REACTIONS (5)
  - Disease progression [Unknown]
  - Drug ineffective [Unknown]
  - Abdominal pain upper [Unknown]
  - Off label use [Unknown]
  - Malaise [Unknown]
